FAERS Safety Report 5359937-1 (Version None)
Quarter: 2007Q2

REPORT INFORMATION
  Report Type: 
  Country: None (occurrence: None)
  Receive Date: 20070530
  Receipt Date: 20070201
  Transmission Date: 20071010
  Serious: No
  Sender: FDA-Public Use
  Company Number: 2007PV029480

PATIENT
  Sex: Female

DRUGS (1)
  1. BYETTA [Suspect]
     Indication: DRUG USE FOR UNKNOWN INDICATION
     Dosage: SC
     Route: 058
     Dates: end: 20060101

REACTIONS (2)
  - DEPRESSED MOOD [None]
  - INJECTION SITE SWELLING [None]
